FAERS Safety Report 14434402 (Version 1)
Quarter: 2018Q1

REPORT INFORMATION
  Report Type: Report from Study
  Country: US (occurrence: US)
  Receive Date: 20180124
  Receipt Date: 20180124
  Transmission Date: 20180509
  Serious: Yes (Hospitalization)
  Sender: FDA-Public Use
  Company Number: US-EISAI MEDICAL RESEARCH-EC-2018-035407

PATIENT
  Age: 19 Year
  Sex: Male
  Weight: 92.5 kg

DRUGS (3)
  1. LENVATINIB [Suspect]
     Active Substance: LENVATINIB
     Indication: OSTEOSARCOMA
     Route: 048
     Dates: start: 20180117, end: 20180122
  2. LENVATINIB [Suspect]
     Active Substance: LENVATINIB
     Route: 048
     Dates: start: 20180123
  3. EVEROLIMUS. [Suspect]
     Active Substance: EVEROLIMUS
     Indication: OSTEOSARCOMA
     Route: 048
     Dates: start: 20180117

REACTIONS (1)
  - Headache [Recovered/Resolved]

NARRATIVE: CASE EVENT DATE: 20180122
